FAERS Safety Report 7917108-6 (Version None)
Quarter: 2011Q4

REPORT INFORMATION
  Report Type: 
  Country: None (occurrence: None)
  Receive Date: 20111116
  Receipt Date: 20111102
  Transmission Date: 20120403
  Serious: Yes (Death, Life-Threatening, Hospitalization, Other)
  Sender: FDA-Public Use
  Company Number: JP-BAYER-200910819BYL

PATIENT
  Age: 73 Year
  Sex: Female
  Weight: 61 kg

DRUGS (16)
  1. ETODOLAC [Concomitant]
     Dosage: 200 MG (DAILY DOSE), , ORAL
     Route: 048
     Dates: start: 20070501, end: 20080216
  2. ALLOPURINOL [Concomitant]
     Dosage: 100 MG (DAILY DOSE), , ORAL
     Route: 048
     Dates: start: 20070501, end: 20080216
  3. DIOVAN [Concomitant]
     Dosage: 80 MG (DAILY DOSE), , ORAL
     Route: 048
     Dates: start: 20070501, end: 20080216
  4. FERROUS CITRATE [Concomitant]
     Dosage: 200 MG (DAILY DOSE), , ORAL
     Route: 048
     Dates: start: 20070501, end: 20080216
  5. MUCOSTA [Concomitant]
     Dosage: 300 MG (DAILY DOSE), , ORAL
     Route: 048
     Dates: start: 20070501, end: 20080216
  6. ZOMETA [Concomitant]
     Dosage: 4 MG (DAILY DOSE), , IV DRIP
     Route: 041
     Dates: start: 20080929, end: 20090223
  7. NEXAVAR [Suspect]
     Dosage: 600 MG (DAILY DOSE), , ORAL
     Route: 048
     Dates: start: 20081110, end: 20081208
  8. IMUNACE [Suspect]
     Indication: PRODUCT USED FOR UNKNOWN INDICATION
     Dosage: 350 KIU (DAILY DOSE), , IV DRIP
     Route: 041
     Dates: start: 20081118, end: 20090223
  9. NEXAVAR [Suspect]
     Indication: RENAL CELL CARCINOMA
     Route: 048
     Dates: start: 20080526, end: 20080728
  10. NEXAVAR [Suspect]
     Dosage: 600 MG (DAILY DOSE), , ORAL
     Route: 048
     Dates: start: 20080804, end: 20081005
  11. NEXAVAR [Suspect]
     Dosage: 800 MG (DAILY DOSE), , ORAL
     Route: 048
     Dates: start: 20081006, end: 20081027
  12. NEXAVAR [Suspect]
     Dosage: 400 MG (DAILY DOSE), , ORAL
     Route: 048
     Dates: start: 20081215, end: 20090216
  13. NORVASC [Concomitant]
     Dosage: 5 MG (DAILY DOSE), , ORAL
     Route: 048
     Dates: start: 20070501, end: 20080216
  14. CINAL [ASCORBIC ACID,CALCIUM PANTOTHENATE] [Concomitant]
     Dosage: 400 MG (DAILY DOSE), , ORAL
     Route: 048
     Dates: start: 20070501, end: 20080216
  15. TAGAMET [Concomitant]
     Dosage: 400 MG (DAILY DOSE), , ORAL
     Route: 048
     Dates: start: 20070501, end: 20080216
  16. ELCITONIN [Concomitant]
     Dosage: 80 MG (DAILY DOSE), , UNKNOWN
     Route: 065
     Dates: start: 20080929, end: 20090223

REACTIONS (10)
  - PSEUDOMEMBRANOUS COLITIS [None]
  - HAEMATEMESIS [None]
  - RASH [None]
  - HYPERCALCAEMIA [None]
  - GASTRIC ULCER [None]
  - STOMATITIS [None]
  - CACHEXIA [None]
  - PYREXIA [None]
  - DIARRHOEA [None]
  - DECREASED APPETITE [None]
